FAERS Safety Report 9127811 (Version 1)
Quarter: 2013Q1

REPORT INFORMATION
  Report Type: Spontaneous
  Country: US (occurrence: US)
  Receive Date: 20130228
  Receipt Date: 20130228
  Transmission Date: 20140127
  Serious: Yes (Hospitalization, Other)
  Sender: FDA-Public Use
  Company Number: US-SANOFI-AVENTIS-2013SA017542

PATIENT
  Age: 75 Year
  Sex: Female

DRUGS (2)
  1. LANTUS [Suspect]
     Indication: TYPE 2 DIABETES MELLITUS
     Dosage: DOSE:44 UNIT(S)
     Route: 058
  2. HUMALOG [Concomitant]
     Dosage: DOSE:14 UNIT(S)

REACTIONS (1)
  - Cerebrovascular accident [Unknown]
